FAERS Safety Report 23130807 (Version 1)
Quarter: 2023Q4

REPORT INFORMATION
  Report Type: Spontaneous
  Country: US (occurrence: US)
  Receive Date: 20231031
  Receipt Date: 20231031
  Transmission Date: 20240109
  Serious: No
  Sender: FDA-Public Use
  Company Number: US-Vifor (International) Inc.-VIT-2023-07941

PATIENT
  Age: 87 Year
  Sex: Female

DRUGS (6)
  1. VELTASSA [Suspect]
     Active Substance: PATIROMER
     Indication: Hyperkalaemia
     Dosage: DISSOLVE INTO 1/3 CUP OF WATER AND DRINK BY MOUTH EVERY OTHER DAY
     Route: 048
     Dates: start: 20161116
  2. COMBIGAN [Concomitant]
     Active Substance: BRIMONIDINE TARTRATE\TIMOLOL MALEATE
     Dosage: 0.2/0.5 PERCENT
  3. LOPID [Concomitant]
     Active Substance: GEMFIBROZIL
  4. OS CAL + D3 [Concomitant]
     Dosage: OS-CAL PLUS D3 500-200
  5. TRAVATAN Z [Concomitant]
     Active Substance: TRAVOPROST
  6. VITAMIN D3 [Concomitant]
     Active Substance: CHOLECALCIFEROL
     Dosage: 2000 UNITS

REACTIONS (2)
  - Constipation [Unknown]
  - Off label use [Unknown]

NARRATIVE: CASE EVENT DATE: 20161116
